FAERS Safety Report 4535557-3 (Version None)
Quarter: 2004Q4

REPORT INFORMATION
  Report Type: 
  Country: None (occurrence: None)
  Receive Date: 20041214
  Receipt Date: 20040915
  Transmission Date: 20050328
  Serious: Yes (Other)
  Sender: FDA-Public Use
  Company Number: 2004234727US

PATIENT
  Sex: Male

DRUGS (3)
  1. BEXTRA [Suspect]
     Dates: start: 20040101
  2. COUMADIN [Suspect]
  3. CARDIOVASCULAR SYSTEM DRUGS [Concomitant]

REACTIONS (3)
  - DRUG INTERACTION [None]
  - GASTROINTESTINAL HAEMORRHAGE [None]
  - INTERNATIONAL NORMALISED RATIO INCREASED [None]
